FAERS Safety Report 20861226 (Version 1)
Quarter: 2022Q2

REPORT INFORMATION
  Report Type: Spontaneous
  Country: JP (occurrence: JP)
  Receive Date: 20220523
  Receipt Date: 20220523
  Transmission Date: 20220721
  Serious: Yes (Death, Hospitalization, Other)
  Sender: FDA-Public Use
  Company Number: JP-PFIZER INC-202200721653

PATIENT
  Age: 8 Decade
  Sex: Female

DRUGS (1)
  1. METHOTREXATE SODIUM [Suspect]
     Active Substance: METHOTREXATE SODIUM
     Indication: Rheumatoid arthritis

REACTIONS (5)
  - Lymphoproliferative disorder [Fatal]
  - Multiple organ dysfunction syndrome [Fatal]
  - C-reactive protein increased [Unknown]
  - Platelet count decreased [Unknown]
  - White blood cell count decreased [Unknown]
